FAERS Safety Report 9185793 (Version 2)
Quarter: 2013Q2

REPORT INFORMATION
  Report Type: Report from Study
  Country: US (occurrence: US)
  Receive Date: 20130325
  Receipt Date: 20130401
  Transmission Date: 20140414
  Serious: Yes (Other)
  Sender: FDA-Public Use
  Company Number: US-ABBOTT-13P-163-1064273-00

PATIENT
  Age: 39 Year
  Sex: Female

DRUGS (18)
  1. HUMIRA [Suspect]
     Indication: CROHN^S DISEASE
     Route: 058
     Dates: start: 20100821
  2. ASACOL [Concomitant]
     Indication: CROHN^S DISEASE
  3. MULTIVITAMIN [Concomitant]
     Indication: PRODUCT USED FOR UNKNOWN INDICATION
  4. SOMA [Concomitant]
     Indication: INSOMNIA
  5. IMODIUM [Concomitant]
     Indication: CROHN^S DISEASE
  6. EXCEDRIN MIGRAINE [Concomitant]
     Indication: MIGRAINE
  7. FLEXOR [Concomitant]
     Indication: SPINAL FRACTURE
     Dosage: PATCH
  8. LIDODERM [Concomitant]
     Indication: SPINAL FRACTURE
     Dosage: PATCH
  9. LITHIUM [Concomitant]
     Indication: BIPOLAR DISORDER
  10. SEROQUEL [Concomitant]
     Indication: BIPOLAR DISORDER
     Dosage: NIGHTLY
  11. BUSPAR [Concomitant]
     Indication: BIPOLAR DISORDER
  12. TRAMADOL [Concomitant]
     Indication: BACK PAIN
  13. TRAMADOL [Concomitant]
     Indication: CROHN^S DISEASE
  14. BENTYL [Concomitant]
     Indication: CROHN^S DISEASE
  15. GAS-X [Concomitant]
     Indication: PRODUCT USED FOR UNKNOWN INDICATION
     Dosage: 15 MINUTES BEVORE WEEKLY HUMIRA INJECTION
  16. TYLENOL [Concomitant]
     Indication: PRODUCT USED FOR UNKNOWN INDICATION
  17. BENADRYL [Concomitant]
     Indication: PRODUCT USED FOR UNKNOWN INDICATION
  18. PREDNISONE [Concomitant]
     Indication: PRODUCT USED FOR UNKNOWN INDICATION
     Dosage: AS PRESCRIBED BY HER DOCTOR

REACTIONS (6)
  - Fistula [Recovered/Resolved]
  - Anal fistula [Recovered/Resolved]
  - Cyst [Recovered/Resolved]
  - Genital abscess [Recovered/Resolved]
  - Cystitis escherichia [Recovering/Resolving]
  - Cystitis [Unknown]
